FAERS Safety Report 5863874-3 (Version None)
Quarter: 2008Q3

REPORT INFORMATION
  Report Type: 
  Country: None (occurrence: None)
  Receive Date: 20080827
  Receipt Date: 20080821
  Transmission Date: 20090109
  Serious: Yes (Other)
  Sender: FDA-Public Use
  Company Number: GXKR2008DE07847

PATIENT
  Age: 38 Year
  Sex: Female

DRUGS (1)
  1. PREDNISOLONE [Suspect]
     Dosage: 7.5 TO 10 MG DAILY, ORAL
     Route: 048

REACTIONS (2)
  - ABORTION LATE [None]
  - DRUG EXPOSURE DURING PREGNANCY [None]
